FAERS Safety Report 4924454-7 (Version None)
Quarter: 2006Q1

REPORT INFORMATION
  Report Type: 
  Country: None (occurrence: None)
  Receive Date: 20060221
  Receipt Date: 20060206
  Transmission Date: 20060701
  Serious: Yes (Hospitalization, Other)
  Sender: FDA-Public Use
  Company Number: 2006018620

PATIENT
  Age: 53 Year
  Sex: Female

DRUGS (15)
  1. LIPITOR [Suspect]
     Indication: BLOOD CHOLESTEROL INCREASED
     Dosage: 10 MG (10 MG, 1 IN 1 D)
  2. OXYCONTIN [Suspect]
     Indication: ILL-DEFINED DISORDER
     Dates: start: 20051201, end: 20051201
  3. ALL OTHER THERAPEUTIC PRODUCTS (ALL OTHER THERAPEUTIC PRODUCTS) [Suspect]
     Indication: INSOMNIA
     Dates: start: 20060101, end: 20060101
  4. XANAX XR [Concomitant]
  5. SYNTHROID [Concomitant]
  6. ASPIRIN [Concomitant]
  7. TRIAMTERENE (TRIAMTERENE) [Concomitant]
  8. ALPHAGAN [Concomitant]
  9. XALATAN [Concomitant]
  10. VITAMIN E [Concomitant]
  11. MULTIVITAMIN [Concomitant]
  12. GLUCOSAMINE (GLUCOSAMINE) [Concomitant]
  13. CHONDROITIN (CHONDROITIN SULFATE) [Concomitant]
  14. VALERIANA COMP (AURANTII CORTEX FRUCTUS DULCIS, CHAMONILE, DIPHENHYDRA [Concomitant]
  15. ASPIRIN A/D (ACETYLSALICYLIC ACID, ALUMINIUM HYDROXIDE GEL, MAGNESIUM [Concomitant]

REACTIONS (11)
  - DEHYDRATION [None]
  - DRUG DISPENSING ERROR [None]
  - INSOMNIA [None]
  - LOSS OF CONSCIOUSNESS [None]
  - MUSCLE SPASMS [None]
  - RESTLESS LEGS SYNDROME [None]
  - RETCHING [None]
  - TRANSIENT ISCHAEMIC ATTACK [None]
  - VOMITING [None]
  - WEIGHT DECREASED [None]
  - WEIGHT LOSS POOR [None]
